FAERS Safety Report 8491827-8 (Version None)
Quarter: 2012Q3

REPORT INFORMATION
  Report Type: 
  Country: None (occurrence: None)
  Receive Date: 20120706
  Receipt Date: 20110531
  Transmission Date: 20120928
  Serious: No
  Sender: FDA-Public Use
  Company Number: US-GLAXOSMITHKLINE-A0929684A

PATIENT
  Age: 73 Year
  Sex: Female

DRUGS (8)
  1. COMBIVENT [Suspect]
  2. ADVAIR DISKUS 100/50 [Suspect]
     Indication: DYSPNOEA
     Route: 055
     Dates: start: 20110510, end: 20110520
  3. PRILOSEC [Concomitant]
  4. FLOVENT [Suspect]
     Indication: DYSPNOEA
     Dosage: 1PUFF TWICE PER DAY
     Route: 055
     Dates: start: 20101001
  5. SYNTHROID [Concomitant]
  6. MEVACOR [Concomitant]
  7. POTASSIUM [Concomitant]
  8. XANAX [Concomitant]

REACTIONS (3)
  - BRONCHITIS [None]
  - RASH [None]
  - NERVOUSNESS [None]
